FAERS Safety Report 5259504-4 (Version None)
Quarter: 2007Q1

REPORT INFORMATION
  Report Type: 
  Country: None (occurrence: None)
  Receive Date: 20070306
  Receipt Date: 20070220
  Transmission Date: 20070707
  Serious: Yes (Hospitalization)
  Sender: FDA-Public Use
  Company Number: MPS1-10580

PATIENT
  Age: 8 Year
  Sex: Female
  Weight: 22.7 kg

DRUGS (4)
  1. ALDURAZYME [Suspect]
     Indication: MUCOPOLYSACCHARIDOSIS I
     Dates: start: 20050224
  2. BENADRYL [Concomitant]
  3. TYLENOL [Concomitant]
  4. HYDROCORTISONE [Concomitant]

REACTIONS (5)
  - CHILLS [None]
  - LIP SWELLING [None]
  - PYREXIA [None]
  - TREMOR [None]
  - VOMITING [None]
